FAERS Safety Report 20773503 (Version 1)
Quarter: 2022Q2

REPORT INFORMATION
  Report Type: Spontaneous
  Country: US (occurrence: None)
  Receive Date: 20220502
  Receipt Date: 20220502
  Transmission Date: 20220721
  Serious: Yes (Other)
  Sender: FDA-Public Use
  Company Number: None

PATIENT
  Sex: Female

DRUGS (9)
  1. ENBREL [Suspect]
     Active Substance: ETANERCEPT
  2. ARMOUR THYRO [Concomitant]
  3. ETODOLAC TAB [Concomitant]
  4. FOLIC ACID TAB [Concomitant]
  5. METHOTREXATE TAB [Concomitant]
  6. PREDNISONE TAB [Concomitant]
  7. PREDNISONE TAB [Concomitant]
  8. VALACYCLOVIR TAB [Concomitant]
  9. VITAMIN D TAB [Concomitant]

REACTIONS (5)
  - Loss of personal independence in daily activities [None]
  - Surgery [None]
  - Therapy interrupted [None]
  - Pain [None]
  - Condition aggravated [None]
